FAERS Safety Report 8555284-5 (Version None)
Quarter: 2012Q3

REPORT INFORMATION
  Report Type: 
  Country: None (occurrence: None)
  Receive Date: 20120731
  Receipt Date: 20110901
  Transmission Date: 20120928
  Serious: No
  Sender: FDA-Public Use
  Company Number: US-ASTRAZENECA-2011SE51514

PATIENT
  Age: 44 Year
  Sex: Female
  Weight: 77.6 kg

DRUGS (13)
  1. NEXIUM [Suspect]
     Indication: GASTROOESOPHAGEAL REFLUX DISEASE
     Route: 048
     Dates: start: 20090101
  2. LOVACA [Concomitant]
     Indication: BLOOD CHOLESTEROL INCREASED
  3. RANITIDINE [Concomitant]
     Indication: GASTRIC DISORDER
  4. SEROQUEL [Suspect]
     Route: 048
     Dates: start: 20110801
  5. CELEBREX [Concomitant]
     Indication: ARTHRITIS
  6. SEROQUEL [Suspect]
     Indication: BIPOLAR DISORDER
     Route: 048
     Dates: start: 20090101, end: 20110101
  7. HYDROCOAT APAP [Concomitant]
     Indication: BONE DISORDER
  8. PREMARIN [Concomitant]
     Indication: MENOPAUSE
  9. DIAZEPAM [Concomitant]
     Indication: ANXIETY
  10. NEXIUM [Suspect]
     Indication: GASTRIC ULCER
     Route: 048
     Dates: start: 20090101
  11. COREG [Concomitant]
     Indication: BLOOD PRESSURE
  12. LORATADINE [Concomitant]
     Indication: SINUSITIS
  13. PRISTIQ [Concomitant]

REACTIONS (4)
  - INSOMNIA [None]
  - DRUG DOSE OMISSION [None]
  - VOMITING [None]
  - DISTURBANCE IN ATTENTION [None]
